FAERS Safety Report 6653195-3 (Version None)
Quarter: 2010Q1

REPORT INFORMATION
  Report Type: 
  Country: None (occurrence: None)
  Receive Date: 20100326
  Receipt Date: 20100319
  Transmission Date: 20100710
  Serious: Yes (Hospitalization)
  Sender: FDA-Public Use
  Company Number: US-WYE-H14225610

PATIENT
  Age: 51 Year
  Sex: Female

DRUGS (1)
  1. ADVIL LIQUI-GELS [Suspect]
     Indication: SURGERY
     Dosage: 2 TABLETS
     Route: 048

REACTIONS (3)
  - DYSPNOEA [None]
  - HAEMORRHAGE [None]
  - LOCAL SWELLING [None]
